FAERS Safety Report 10254354 (Version 1)
Quarter: 2014Q2

REPORT INFORMATION
  Report Type: Report from Study
  Country: US (occurrence: US)
  Receive Date: 20140624
  Receipt Date: 20140624
  Transmission Date: 20141212
  Serious: Yes (Other)
  Sender: FDA-Public Use
  Company Number: US-ROCHE-1422448

PATIENT
  Sex: Male
  Weight: 35.5 kg

DRUGS (4)
  1. NUTROPIN AQ [Suspect]
     Indication: HYPOPITUITARISM
     Route: 058
  2. LEVOTHYROXINE [Concomitant]
  3. CORTEF [Concomitant]
  4. DDAVP [Concomitant]

REACTIONS (7)
  - Insulin-like growth factor decreased [Unknown]
  - Growth retardation [Unknown]
  - Insulin-like growth factor decreased [Unknown]
  - Drug dose omission [Unknown]
  - Weight increased [Unknown]
  - Enuresis [Unknown]
  - Body mass index increased [Unknown]
